FAERS Safety Report 8810319 (Version 2)
Quarter: 2012Q4

REPORT INFORMATION
  Report Type: 
  Country: IT (occurrence: IT)
  Receive Date: 20120926
  Receipt Date: 20121019
  Transmission Date: 20130627
  Serious: Yes (Hospitalization, Other)
  Sender: FDA-Public Use
  Company Number: IT-MERCK-1209ITA004774

PATIENT
  Age: 32 Year
  Sex: Male
  Weight: 100 kg

DRUGS (11)
  1. RALTEGRAVIR POTASSIUM [Suspect]
     Indication: HIV INFECTION
     Dosage: 800 mg, qd
     Route: 048
     Dates: start: 20090116
  2. RALTEGRAVIR POTASSIUM [Suspect]
     Dosage: UNK
     Dates: start: 200901
  3. LAMIVUDINE [Suspect]
     Indication: HIV INFECTION
     Dosage: 1 DF, qd
     Dates: start: 20090116
  4. ATAZANAVIR [Suspect]
     Indication: HIV INFECTION
     Dosage: 1 DF, bid
     Dates: start: 20090116
  5. CYCLOSPORINE [Suspect]
     Indication: IMMUNOSUPPRESSION
  6. METHYLPREDNISOLONE [Suspect]
     Indication: IMMUNOSUPPRESSION
     Dosage: 1 DF, qd
     Dates: start: 20090107, end: 20090310
  7. SIROLIMUS [Suspect]
     Indication: HIV INFECTION
     Dosage: 2 mg, qd
     Dates: start: 20090107, end: 20090320
  8. ASPIRIN [Concomitant]
     Dosage: 1 DF, qd
     Dates: start: 20090109
  9. VALGANCICLOVIR HYDROCHLORIDE [Concomitant]
     Dosage: 2 DF, bid
     Dates: start: 20090111, end: 20091116
  10. LANSOPRAZOLE [Concomitant]
     Dosage: 1 DF, qd
     Dates: start: 20090107
  11. SULFAMETHOXAZOLE (+) TRIMETHOPRIM [Concomitant]
     Dosage: 1 DF, tiw
     Dates: start: 20090111, end: 20100110

REACTIONS (1)
  - Osteonecrosis [Recovered/Resolved]
